FAERS Safety Report 10305203 (Version 1)
Quarter: 2014Q3

REPORT INFORMATION
  Report Type: Spontaneous
  Country: US (occurrence: None)
  Receive Date: 20140711
  Receipt Date: 20140711
  Transmission Date: 20150326
  Serious: No
  Sender: FDA-Public Use
  Company Number: None

PATIENT

DRUGS (1)
  1. LEVOFLOXACIN [Suspect]
     Active Substance: LEVOFLOXACIN
     Indication: ASTHMA
     Dosage: 1 PILL DAILY, BY MOUTH
     Route: 048
     Dates: start: 20140621, end: 20140625

REACTIONS (4)
  - Contusion [None]
  - Anger [None]
  - Tendonitis [None]
  - Tendon injury [None]

NARRATIVE: CASE EVENT DATE: 20140626
